FAERS Safety Report 23105422 (Version 1)
Quarter: 2023Q4

REPORT INFORMATION
  Report Type: Spontaneous
  Country: US (occurrence: None)
  Receive Date: 20231023
  Receipt Date: 20231023
  Transmission Date: 20240109
  Serious: Yes (Hospitalization)
  Sender: FDA-Public Use
  Company Number: None

PATIENT
  Age: 75 Year
  Sex: Male
  Weight: 90 kg

DRUGS (1)
  1. INSULIN HUMAN [Suspect]
     Active Substance: INSULIN HUMAN
     Dosage: OTHER QUANTITY : 18 UNITS;?FREQUENCY : AT BEDTIME;?
     Route: 058
     Dates: start: 20221221, end: 20230224

REACTIONS (3)
  - Diarrhoea [None]
  - Hypoglycaemia [None]
  - Therapy cessation [None]

NARRATIVE: CASE EVENT DATE: 20230224
